FAERS Safety Report 5365679-9 (Version None)
Quarter: 2007Q2

REPORT INFORMATION
  Report Type: 
  Country: None (occurrence: None)
  Receive Date: 20070621
  Receipt Date: 20070613
  Transmission Date: 20071010
  Serious: Yes (Other)
  Sender: FDA-Public Use
  Company Number: US-ELI_LILLY_AND_COMPANY-US200706003142

PATIENT
  Sex: Female

DRUGS (2)
  1. ILETIN [Suspect]
     Dosage: UNK, UNKNOWN
  2. LANTUS [Concomitant]
     Dosage: UNK, UNKNOWN

REACTIONS (3)
  - BLOOD GLUCOSE DECREASED [None]
  - BLOOD PRESSURE INCREASED [None]
  - FEELING ABNORMAL [None]
